FAERS Safety Report 23235531 (Version 12)
Quarter: 2025Q2

REPORT INFORMATION
  Report Type: Spontaneous
  Country: US (occurrence: US)
  Receive Date: 20231128
  Receipt Date: 20250620
  Transmission Date: 20250717
  Serious: No
  Sender: PFIZER
  Company Number: US-PFIZER INC-2019399844

PATIENT
  Age: 62 Year
  Sex: Female

DRUGS (5)
  1. PREMARIN [Suspect]
     Active Substance: ESTROGENS, CONJUGATED
     Indication: Atrophic vulvovaginitis
     Dosage: 2 G, DAILY (A FULL APPLICATOR/NIGHTLY)
     Dates: start: 2020
  2. PREMARIN [Suspect]
     Active Substance: ESTROGENS, CONJUGATED
     Dosage: 0.5 MG, 2X/WEEK
  3. PREMARIN [Suspect]
     Active Substance: ESTROGENS, CONJUGATED
     Dosage: 1 GM VAG QPM (ONCE A DAY IN THE EVENING)
     Route: 067
  4. PREMARIN [Suspect]
     Active Substance: ESTROGENS, CONJUGATED
     Dosage: UNK, 2X/WEEK
     Route: 067
  5. PREMARIN [Suspect]
     Active Substance: ESTROGENS, CONJUGATED
     Dosage: A LITTLE BIT ON THE OUTSIDE EVERY DAY

REACTIONS (5)
  - Sinus disorder [Unknown]
  - Dysphonia [Unknown]
  - Product prescribing error [Unknown]
  - Intentional product misuse [Unknown]
  - Intentional product use issue [Unknown]
